FAERS Safety Report 23848959 (Version 1)
Quarter: 2024Q2

REPORT INFORMATION
  Report Type: Spontaneous
  Country: PT (occurrence: PT)
  Receive Date: 20240513
  Receipt Date: 20240513
  Transmission Date: 20240716
  Serious: Yes (Life-Threatening)
  Sender: FDA-Public Use
  Company Number: None

PATIENT
  Age: 64 Year
  Sex: Female

DRUGS (14)
  1. ROCURONIUM BROMIDE [Suspect]
     Active Substance: ROCURONIUM BROMIDE
     Indication: Induction of anaesthesia
     Dosage: SINGLE DOSE?FORM OF ADMIN: SOLUTION FOR INJECTION OR INFUSION?ROUTE: INTRAVENOUS
     Dates: start: 20240418, end: 20240418
  2. FENTANYL CITRATE [Suspect]
     Active Substance: FENTANYL CITRATE
     Indication: Induction of anaesthesia
     Dosage: SINGLE DOSE?SOLUTION FOR INJECTION?INTRAVENOUS
     Dates: start: 20240418, end: 20240418
  3. LIDOCAINE HYDROCHLORIDE [Suspect]
     Active Substance: LIDOCAINE HYDROCHLORIDE
     Indication: Induction of anaesthesia
     Dosage: SINGLE DOSE?SOLUTION FOR INJECTION?INTRAVENOUS
     Dates: start: 20240418, end: 20240418
  4. DEXAMETHASONE [Concomitant]
     Active Substance: DEXAMETHASONE
     Indication: Product used for unknown indication
  5. CEFAZOLIN [Concomitant]
     Active Substance: CEFAZOLIN
     Indication: Product used for unknown indication
  6. EPHEDRINE [Concomitant]
     Active Substance: EPHEDRINE
     Indication: Product used for unknown indication
     Dosage: SOLUTION FOR INJECTION?INTRAMUSCULAR
  7. NOREPINEPHRINE [Concomitant]
     Active Substance: NOREPINEPHRINE\NOREPINEPHRINE BITARTRATE
     Indication: Product used for unknown indication
     Dosage: SOLUTION FOR INJECTION?INTRAVENOUS
  8. METOCLOPRAMIDE [Concomitant]
     Active Substance: METOCLOPRAMIDE
     Indication: Product used for unknown indication
     Dosage: SOLUTION FOR INJECTION?INTRAVENOUS
  9. CLEMASTINE [Concomitant]
     Active Substance: CLEMASTINE
     Indication: Product used for unknown indication
     Dosage: SOLUTION FOR INJECTION?INTRAVENOUS
  10. PHENYLEPHRINE [Concomitant]
     Active Substance: PHENYLEPHRINE HYDROCHLORIDE
     Indication: Product used for unknown indication
     Dosage: SOLUTION FOR INJECTION IN PRE-FILLED SYRINGE?INTRAVENOUS
  11. HYDROCORTISONE [Concomitant]
     Active Substance: HYDROCORTISONE
     Indication: Product used for unknown indication
     Dosage: POWDER FOR SOLUTION FOR INJECTION?INTRAVENOUS
  12. PANTOPRAZOLE [Concomitant]
     Active Substance: PANTOPRAZOLE
     Indication: Product used for unknown indication
     Dosage: POWDER FOR SOLUTION FOR INJECTION?INTRAVENOUS
  13. SODIUM CHLORIDE [Concomitant]
     Active Substance: SODIUM CHLORIDE
     Indication: Product used for unknown indication
     Dosage: SOLUTION FOR INJECTION?INTRAVENOUS
  14. EPINEPHRINE [Concomitant]
     Active Substance: EPINEPHRINE
     Indication: Product used for unknown indication
     Dosage: SOLUTION FOR INJECTION?INTRAMUSCULAR

REACTIONS (1)
  - Anaphylactic reaction [Recovered/Resolved]

NARRATIVE: CASE EVENT DATE: 20240418
